FAERS Safety Report 7083203-X (Version None)
Quarter: 2010Q4

REPORT INFORMATION
  Report Type: 
  Country: None (occurrence: None)
  Receive Date: 20101104
  Receipt Date: 20090228
  Transmission Date: 20110411
  Serious: No
  Sender: FDA-Public Use
  Company Number: US-KINGPHARMUSA00001-K200900221

PATIENT
  Sex: Female
  Weight: 100.68 kg

DRUGS (3)
  1. FLECTOR [Suspect]
     Indication: ARTHRITIS
     Dosage: PATCH, SINGLE
     Route: 061
     Dates: start: 20090227, end: 20090227
  2. THYROID THERAPY [Concomitant]
     Indication: THYROID DISORDER
     Dosage: UNK
  3. ASTHMA MEDICATION [Concomitant]
     Indication: ASTHMA
     Dosage: UNK

REACTIONS (1)
  - DIZZINESS [None]
